FAERS Safety Report 5898862-4 (Version None)
Quarter: 2008Q3

REPORT INFORMATION
  Report Type: 
  Country: None (occurrence: None)
  Receive Date: 20080925
  Receipt Date: 20080922
  Transmission Date: 20090109
  Serious: Yes (Other)
  Sender: FDA-Public Use
  Company Number: ZA-GILEAD-2007-0014603

PATIENT
  Sex: Female

DRUGS (16)
  1. TRUVADA [Suspect]
     Indication: HIV INFECTION
     Dosage: 500 MILLIGRAMS
     Route: 048
     Dates: start: 20070222
  2. TRUVADA [Suspect]
     Dosage: 500 MILLIGRAMS
     Route: 048
     Dates: start: 20061130, end: 20070125
  3. KALETRA [Suspect]
     Indication: HIV INFECTION
     Dosage: 1000 MILLIGRAMS
     Route: 048
     Dates: start: 20061130
  4. COMBIVIR [Suspect]
     Indication: HIV INFECTION
     Dosage: 900 MILLIGRAMS
     Route: 048
     Dates: start: 20070125, end: 20070222
  5. BUSCOPAN [Concomitant]
     Route: 065
     Dates: start: 20070104, end: 20070116
  6. RANITIDINE [Concomitant]
     Route: 065
     Dates: start: 20070104, end: 20070116
  7. FOLIC ACID [Concomitant]
     Dates: start: 20070104, end: 20070130
  8. FERROUS SULFATE TAB [Concomitant]
     Route: 065
     Dates: start: 20070104, end: 20070130
  9. PAINAMOL [Concomitant]
     Route: 065
     Dates: start: 20070104, end: 20070116
  10. CIPROFLOXACIN [Concomitant]
     Route: 065
     Dates: start: 20061228, end: 20070102
  11. CIPROFLOXACIN [Concomitant]
     Dates: start: 20070322, end: 20070327
  12. VITAMIN B [Concomitant]
     Route: 065
     Dates: start: 20061228
  13. ASCORBIC ACID [Concomitant]
     Route: 065
     Dates: start: 20061228
  14. ASCORBIC ACID [Concomitant]
     Route: 065
     Dates: start: 20061001, end: 20061122
  15. FERROUS SUL TAB [Concomitant]
     Route: 065
     Dates: start: 20061001, end: 20061122
  16. MULTI-VITAMINS [Concomitant]
     Route: 065
     Dates: start: 20061001, end: 20061122

REACTIONS (1)
  - ABORTION SPONTANEOUS [None]
